FAERS Safety Report 7610969-X (Version None)
Quarter: 2011Q3

REPORT INFORMATION
  Report Type: 
  Country: None (occurrence: None)
  Receive Date: 20110715
  Receipt Date: 20110414
  Transmission Date: 20111222
  Serious: Yes (Other)
  Sender: FDA-Public Use
  Company Number: US-BAYER-201025026NA

PATIENT
  Age: 38 Year
  Sex: Female

DRUGS (12)
  1. OMNISCAN [Suspect]
     Indication: NUCLEAR MAGNETIC RESONANCE IMAGING
  2. FERROUS SULFATE TAB [Concomitant]
  3. MULTIHANCE [Suspect]
     Indication: NUCLEAR MAGNETIC RESONANCE IMAGING
  4. TACROLIMUS [Concomitant]
  5. EPOGEN [Concomitant]
  6. ANALGESICS [Concomitant]
  7. SYNTHROID [Concomitant]
  8. GADOLINIUM IN UNSPECIFIED DRUG [Suspect]
     Dates: start: 20010801, end: 20010801
  9. OPTIMARK [Suspect]
     Indication: NUCLEAR MAGNETIC RESONANCE IMAGING
  10. PREDNISONE [Concomitant]
  11. GADOLINIUM IN UNSPECIFIED DRUG [Suspect]
     Dosage: 20 ML (DAILY DOSE), ,
     Dates: start: 20051026, end: 20051026
  12. PROHANCE [Suspect]
     Indication: NUCLEAR MAGNETIC RESONANCE IMAGING

REACTIONS (9)
  - MUSCULAR WEAKNESS [None]
  - GAIT DISTURBANCE [None]
  - PAIN [None]
  - DEFORMITY [None]
  - SKIN INDURATION [None]
  - NEPHROGENIC SYSTEMIC FIBROSIS [None]
  - DYSSTASIA [None]
  - DYSPNOEA [None]
  - ABASIA [None]
